FAERS Safety Report 7980032-7 (Version None)
Quarter: 2011Q4

REPORT INFORMATION
  Report Type: 
  Country: None (occurrence: None)
  Receive Date: 20111212
  Receipt Date: 20110127
  Transmission Date: 20120403
  Serious: Yes (Other)
  Sender: FDA-Public Use
  Company Number: GGEL20111201574

PATIENT
  Sex: Male

DRUGS (1)
  1. GABAPENTIN [Suspect]
     Indication: PANIC ATTACK
     Dosage: 16000 MILLIGRAM, 20 IN 1 D

REACTIONS (1)
  - DRUG DEPENDENCE [None]
